FAERS Safety Report 4784497-3 (Version None)
Quarter: 2005Q3

REPORT INFORMATION
  Report Type: 
  Country: None (occurrence: None)
  Receive Date: 20050930
  Receipt Date: 20050928
  Transmission Date: 20060218
  Serious: Yes (Other)
  Sender: FDA-Public Use
  Company Number: US-GLAXOSMITHKLINE-A0576239A

PATIENT
  Age: 51 Year
  Sex: Male

DRUGS (5)
  1. VALTREX [Suspect]
     Dosage: 500MG TWICE PER DAY
     Route: 048
     Dates: start: 20050914, end: 20050919
  2. COUMADIN [Suspect]
     Indication: DRUG USE FOR UNKNOWN INDICATION
  3. DILANTIN [Concomitant]
  4. LIPITOR [Concomitant]
  5. FOSAMAX [Concomitant]

REACTIONS (2)
  - DRUG INTERACTION [None]
  - PURPURA [None]
